FAERS Safety Report 14597496 (Version 1)
Quarter: 2018Q1

REPORT INFORMATION
  Report Type: Spontaneous
  Country: US (occurrence: US)
  Receive Date: 20180305
  Receipt Date: 20180305
  Transmission Date: 20180509
  Serious: No
  Sender: FDA-Public Use
  Company Number: US-TEVA-2018-US-867327

PATIENT
  Sex: Male

DRUGS (2)
  1. AUSTEDO [Suspect]
     Active Substance: DEUTETRABENAZINE
     Indication: AKATHISIA
     Dosage: 24 MILLIGRAM DAILY; WEEK THREE. MAINTENANCE DOSE.
     Route: 065
  2. AUSTEDO [Suspect]
     Active Substance: DEUTETRABENAZINE
     Dosage: NEW/TITRATING PATIENT
     Route: 065

REACTIONS (1)
  - Off label use [Unknown]
